FAERS Safety Report 17524636 (Version 1)
Quarter: 2020Q1

REPORT INFORMATION
  Report Type: Spontaneous
  Country: US (occurrence: US)
  Receive Date: 20200310
  Receipt Date: 20200310
  Transmission Date: 20200409
  Serious: Yes (Death)
  Sender: FDA-Public Use
  Company Number: None

PATIENT
  Age: 72 Year
  Sex: Male
  Weight: 73.8 kg

DRUGS (11)
  1. ATORVASTATIN 40MG [Concomitant]
     Active Substance: ATORVASTATIN
  2. PROCHLORPERAZINE AS NEEDED [Concomitant]
  3. CABOZANTINIB [Suspect]
     Active Substance: CABOZANTINIB
     Indication: RENAL CANCER METASTATIC
     Route: 048
     Dates: start: 20200215
  4. AMLODIPINE [Concomitant]
     Active Substance: AMLODIPINE BESYLATE
  5. LOSARTAN 100MG [Concomitant]
     Active Substance: LOSARTAN
  6. ZOFRAN 8MG AS NEEDED [Concomitant]
  7. ASPIRIN 81MG [Concomitant]
     Active Substance: ASPIRIN
  8. TOUJEO INSULIN 24 UNITS DAILY [Concomitant]
  9. GLIMEPIRIDE 2MG [Concomitant]
     Active Substance: GLIMEPIRIDE
  10. LEVOTHYROXINE 100MG [Concomitant]
     Active Substance: LEVOTHYROXINE
  11. OZEMPIC [Concomitant]
     Active Substance: SEMAGLUTIDE

REACTIONS (2)
  - Myocardial infarction [None]
  - Sudden death [None]

NARRATIVE: CASE EVENT DATE: 20200305
